FAERS Safety Report 24653341 (Version 1)
Quarter: 2024Q4

REPORT INFORMATION
  Report Type: Spontaneous
  Country: HR (occurrence: HR)
  Receive Date: 20241122
  Receipt Date: 20241122
  Transmission Date: 20250115
  Serious: Yes (Other)
  Sender: RECKITT BENCKISER
  Company Number: None

PATIENT

DRUGS (1)
  1. BUPRENORPHINE [Suspect]
     Active Substance: BUPRENORPHINE
     Indication: Product used for unknown indication
     Dosage: DRANK A HANDFUL OF MEDICINES
     Route: 048
     Dates: start: 20241015, end: 20241015

REACTIONS (4)
  - Gait disturbance [Unknown]
  - Substance use [Unknown]
  - Miosis [Unknown]
  - Headache [Unknown]

NARRATIVE: CASE EVENT DATE: 20241015
